FAERS Safety Report 23902687 (Version 1)
Quarter: 2024Q2

REPORT INFORMATION
  Report Type: Spontaneous
  Country: US (occurrence: US)
  Receive Date: 20240527
  Receipt Date: 20240527
  Transmission Date: 20240715
  Serious: No
  Sender: FDA-Public Use
  Company Number: US-SANDOZ-SDZ2024US051839

PATIENT

DRUGS (8)
  1. BUMEX [Suspect]
     Active Substance: BUMETANIDE
     Indication: Product used for unknown indication
     Dosage: 2.5 MG AT 1:15 PM
     Route: 065
  2. BUMEX [Suspect]
     Active Substance: BUMETANIDE
     Dosage: 2.5 MG AT 6:00 PM
     Route: 065
  3. CARVEDILOL [Suspect]
     Active Substance: CARVEDILOL
     Dosage: UNK: 6.25MG (9.375MG) X 2 AT 12:00 PM
     Route: 065
  4. CARVEDILOL [Suspect]
     Active Substance: CARVEDILOL
     Dosage: UNK; 2.5 X 6.25MG (15.625MG) X1 AT 8:00 PM
     Route: 065
  5. CARVEDILOL [Suspect]
     Active Substance: CARVEDILOL
     Dosage: UNK; 2.5 X 6.25MG (15.625MG) X2 AT 9:15 PM
     Route: 065
  6. CARVEDILOL [Suspect]
     Active Substance: CARVEDILOL
     Indication: Product used for unknown indication
     Dosage: UNK; 6.25MG X1 AT 10:45 AM
     Route: 065
  7. ENTRESTO [Suspect]
     Active Substance: SACUBITRIL\VALSARTAN
     Indication: Product used for unknown indication
     Dosage: UNK; 97MG/103MG X1 AT 10:45 AM
     Route: 065
  8. ENTRESTO [Suspect]
     Active Substance: SACUBITRIL\VALSARTAN
     Dosage: UNK; 97MG/103MG X1 AT 8:00 PM
     Route: 065

REACTIONS (2)
  - Dehydration [Unknown]
  - Somnolence [Unknown]
